FAERS Safety Report 4422226-3 (Version None)
Quarter: 2004Q3

REPORT INFORMATION
  Report Type: 
  Country: None (occurrence: None)
  Receive Date: 20040712
  Receipt Date: 20040113
  Transmission Date: 20050211
  Serious: No
  Sender: FDA-Public Use
  Company Number: TAP2004Q00070

PATIENT
  Age: 69 Year
  Sex: Female

DRUGS (7)
  1. PREVACID [Suspect]
     Indication: GASTROOESOPHAGEAL REFLUX DISEASE
     Dosage: 30 MG, ONCE, PER ORAL
     Route: 048
     Dates: start: 20030701, end: 20030701
  2. FOSAMAX [Concomitant]
  3. ULTRAM [Concomitant]
  4. CALCIUM (CALCIUM /N/A) [Concomitant]
  5. ASPIRIN [Concomitant]
  6. NEXIUM [Concomitant]
  7. UNSPECIFIED GI MEDICATION [Concomitant]

REACTIONS (1)
  - VOMITING PROJECTILE [None]
